FAERS Safety Report 15429832 (Version 2)
Quarter: 2018Q4

REPORT INFORMATION
  Report Type: Report from Study
  Country: US (occurrence: US)
  Receive Date: 20180926
  Receipt Date: 20181001
  Transmission Date: 20190204
  Serious: Yes (Hospitalization, Other)
  Sender: FDA-Public Use
  Company Number: US-ALEXION PHARMACEUTICALS INC.-A201812336

PATIENT
  Sex: Male

DRUGS (1)
  1. SOLIRIS [Suspect]
     Active Substance: ECULIZUMAB
     Indication: PRODUCT USED FOR UNKNOWN INDICATION
     Dosage: UNK
     Route: 065

REACTIONS (13)
  - Sepsis [Unknown]
  - Pain in extremity [Unknown]
  - Pain [Unknown]
  - Blood potassium increased [Unknown]
  - Haematuria [Unknown]
  - Peripheral swelling [Unknown]
  - Dyspnoea [Unknown]
  - Abdominal distension [Unknown]
  - Renal disorder [Unknown]
  - Dysstasia [Unknown]
  - Blood glucose increased [Unknown]
  - Pulmonary oedema [Unknown]
  - Haemoglobin decreased [Unknown]
